FAERS Safety Report 24080084 (Version 2)
Quarter: 2024Q3

REPORT INFORMATION
  Report Type: Spontaneous
  Country: US (occurrence: US)
  Receive Date: 20240711
  Receipt Date: 20240816
  Transmission Date: 20241017
  Serious: No
  Sender: TAKEDA
  Company Number: US-TAKEDA-2024TUS069943

PATIENT
  Sex: Female
  Weight: 64 kg

DRUGS (4)
  1. ADDERALL XR [Suspect]
     Active Substance: AMPHETAMINE ASPARTATE\AMPHETAMINE SULFATE\DEXTROAMPHETAMINE SACCHARATE\DEXTROAMPHETAMINE SULFATE
     Indication: Psychomotor hyperactivity
     Dosage: 15 MILLIGRAM
     Route: 065
  2. ROSUVASTATIN [Concomitant]
     Active Substance: ROSUVASTATIN\ROSUVASTATIN CALCIUM
  3. DULOXETINE [Concomitant]
     Active Substance: DULOXETINE
  4. ALPRAZOLAM [Concomitant]
     Active Substance: ALPRAZOLAM
     Dosage: 1 MILLIGRAM

REACTIONS (4)
  - Product colour issue [Unknown]
  - Product packaging quantity issue [Unknown]
  - Drug ineffective [Unknown]
  - Body height decreased [Unknown]
